FAERS Safety Report 7768560-0 (Version None)
Quarter: 2011Q3

REPORT INFORMATION
  Report Type: 
  Country: None (occurrence: None)
  Receive Date: 20110922
  Receipt Date: 20101008
  Transmission Date: 20111222
  Serious: No
  Sender: FDA-Public Use
  Company Number: US-ASTRAZENECA-2010SE47948

PATIENT
  Age: 707 Month
  Sex: Female
  Weight: 104.3 kg

DRUGS (6)
  1. SEROQUEL [Suspect]
     Indication: PANIC DISORDER
     Route: 048
     Dates: start: 20090101, end: 20100901
  2. SEROQUEL [Suspect]
     Route: 048
     Dates: start: 20090101, end: 20100901
  3. SEROQUEL [Suspect]
     Indication: BIPOLAR I DISORDER
     Route: 048
     Dates: start: 20090101, end: 20100901
  4. SEROQUEL [Suspect]
     Indication: ANXIETY
     Route: 048
     Dates: start: 20090101, end: 20100901
  5. SEROQUEL [Suspect]
     Route: 048
     Dates: start: 20090101, end: 20100901
  6. SEROQUEL [Suspect]
     Route: 048
     Dates: start: 20090101, end: 20100901

REACTIONS (3)
  - INSOMNIA [None]
  - DRUG DOSE OMISSION [None]
  - DEPRESSION [None]
